FAERS Safety Report 8032578-3 (Version None)
Quarter: 2011Q4

REPORT INFORMATION
  Report Type: 
  Country: None (occurrence: None)
  Receive Date: 20111223
  Receipt Date: 20111214
  Transmission Date: 20120403
  Serious: Yes (Hospitalization)
  Sender: FDA-Public Use
  Company Number: 2011SP017555

PATIENT
  Age: 17 Year
  Sex: Female
  Weight: 52.1637 kg

DRUGS (7)
  1. NUVARING [Suspect]
     Indication: CONTRACEPTION
     Dosage: QM;VAG
     Route: 067
     Dates: start: 20070501, end: 20090419
  2. NUVARING [Suspect]
     Indication: MENSTRUAL DISORDER
     Dosage: QM;VAG
     Route: 067
     Dates: start: 20070501, end: 20090419
  3. NUVARING [Suspect]
     Indication: OVARIAN CYST
     Dosage: QM;VAG
     Route: 067
     Dates: start: 20070501, end: 20090419
  4. NUVARING [Suspect]
     Indication: DYSMENORRHOEA
     Dosage: QM;VAG
     Route: 067
     Dates: start: 20070501, end: 20090419
  5. VYVANSE [Concomitant]
  6. LORAZEPAM [Concomitant]
  7. SERTRALINE HYDROCHLORIDE [Concomitant]

REACTIONS (8)
  - FLANK PAIN [None]
  - HYPERCOAGULATION [None]
  - PANIC ATTACK [None]
  - ANXIETY DISORDER [None]
  - PULMONARY EMBOLISM [None]
  - ABDOMINAL PAIN [None]
  - WITHDRAWAL BLEED [None]
  - SPLENOMEGALY [None]
